FAERS Safety Report 8048467-4 (Version None)
Quarter: 2012Q1

REPORT INFORMATION
  Report Type: 
  Country: None (occurrence: None)
  Receive Date: 20120110
  Receipt Date: 20120103
  Transmission Date: 20120608
  Serious: Yes (Other)
  Sender: FDA-Public Use
  Company Number: 2011029936

PATIENT
  Age: 59 Year
  Sex: Female
  Weight: 136.5327 kg

DRUGS (21)
  1. EFFEXOR [Concomitant]
  2. HIZENTRA [Suspect]
  3. NEURONTIN [Concomitant]
  4. KLOR-CON [Concomitant]
  5. ZETIA [Concomitant]
  6. ALDACTONE [Concomitant]
  7. DICLOFENAC SODIUM [Concomitant]
  8. HIZENTRA [Suspect]
     Indication: IMMUNODEFICIENCY COMMON VARIABLE
     Dosage: SEE IMAGE
     Route: 058
     Dates: start: 20110928
  9. HIZENTRA [Suspect]
     Indication: IMMUNODEFICIENCY COMMON VARIABLE
     Dosage: SEE IMAGE
     Route: 058
     Dates: start: 20110928
  10. HIZENTRA [Suspect]
     Indication: IMMUNODEFICIENCY COMMON VARIABLE
     Dosage: SEE IMAGE
     Route: 058
     Dates: start: 20110928
  11. HIZENTRA [Suspect]
     Indication: IMMUNODEFICIENCY COMMON VARIABLE
     Dosage: SEE IMAGE
     Route: 058
     Dates: start: 20110928
  12. HIZENTRA [Suspect]
     Indication: IMMUNODEFICIENCY COMMON VARIABLE
     Dosage: SEE IMAGE
     Route: 058
     Dates: start: 20110928
  13. HIZENTRA [Suspect]
     Indication: IMMUNODEFICIENCY COMMON VARIABLE
     Dosage: SEE IMAGE
     Route: 058
     Dates: start: 20110928
  14. HIZENTRA [Suspect]
  15. HIZENTRA [Suspect]
  16. SINGULAIR [Concomitant]
  17. OMEPRAZOLE [Concomitant]
  18. HIZENTRA [Suspect]
  19. LASIX [Concomitant]
  20. HIZENTRA [Suspect]
  21. LOSARTAN POTASSIUM [Concomitant]

REACTIONS (4)
  - INFUSION SITE PRURITUS [None]
  - URINARY TRACT INFECTION [None]
  - MUSCULOSKELETAL STIFFNESS [None]
  - ARTHRALGIA [None]
